FAERS Safety Report 6728665-X (Version None)
Quarter: 2010Q2

REPORT INFORMATION
  Report Type: 
  Country: None (occurrence: None)
  Receive Date: 20100517
  Receipt Date: 20100506
  Transmission Date: 20101027
  Serious: Yes (Death)
  Sender: FDA-Public Use
  Company Number: IN-WATSON-2010-06371

PATIENT
  Age: 43 Year
  Sex: Female

DRUGS (1)
  1. LEVORA 0.15/30-28 (WATSON LABORATORIES) [Suspect]
     Indication: MENORRHAGIA
     Dosage: UNK
     Route: 048

REACTIONS (2)
  - ANGIOSARCOMA [None]
  - HEPATIC FAILURE [None]
